FAERS Safety Report 17545151 (Version 1)
Quarter: 2020Q1

REPORT INFORMATION
  Report Type: Spontaneous
  Country: US (occurrence: US)
  Receive Date: 20200313
  Receipt Date: 20200313
  Transmission Date: 20200409
  Serious: Yes (Disabling)
  Sender: FDA-Public Use
  Company Number: None

PATIENT
  Age: 100 Year
  Sex: Male

DRUGS (1)
  1. FECAL TRANSPLANT CAPSULES FOR MOUTH [Suspect]
     Active Substance: FECAL MICROBIOTA
     Indication: CLOSTRIDIUM DIFFICILE INFECTION
     Dates: start: 20181115, end: 20181115

REACTIONS (1)
  - Pruritus [None]

NARRATIVE: CASE EVENT DATE: 20181115
